FAERS Safety Report 25087821 (Version 1)
Quarter: 2025Q1

REPORT INFORMATION
  Report Type: Spontaneous
  Country: US (occurrence: US)
  Receive Date: 20250318
  Receipt Date: 20250318
  Transmission Date: 20250409
  Serious: No
  Sender: UNITED THERAPEUTICS
  Company Number: US-UNITED THERAPEUTICS-UNT-2025-008347

PATIENT

DRUGS (1)
  1. ORENITRAM [Suspect]
     Active Substance: TREPROSTINIL
     Indication: Product used for unknown indication

REACTIONS (3)
  - Brain fog [Not Recovered/Not Resolved]
  - Irritability [Not Recovered/Not Resolved]
  - Drug ineffective [Unknown]
